FAERS Safety Report 15980800 (Version 1)
Quarter: 2019Q1

REPORT INFORMATION
  Report Type: Report from Study
  Country: US (occurrence: US)
  Receive Date: 20190219
  Receipt Date: 20190219
  Transmission Date: 20190418
  Serious: Yes (Hospitalization)
  Sender: FDA-Public Use
  Company Number: US-JNJFOC-20190221319

PATIENT
  Age: 72 Year
  Sex: Male

DRUGS (14)
  1. LISINOPRIL. [Concomitant]
     Active Substance: LISINOPRIL
  2. BUSPIRONE [Concomitant]
     Active Substance: BUSPIRONE HYDROCHLORIDE
  3. SPIRONOLACTONE. [Concomitant]
     Active Substance: SPIRONOLACTONE
  4. NICOTINIC ACID [Concomitant]
     Active Substance: NIACIN
  5. IMBRUVICA [Suspect]
     Active Substance: IBRUTINIB
     Indication: CHRONIC LYMPHOCYTIC LEUKAEMIA
     Dosage: 420 MG, QD
     Route: 048
     Dates: start: 20181203, end: 20190127
  6. SERTRALINE HCL [Concomitant]
     Active Substance: SERTRALINE HYDROCHLORIDE
  7. ATORVASTATIN CALCIUM. [Concomitant]
     Active Substance: ATORVASTATIN CALCIUM
  8. AMIODARONE HCL [Concomitant]
     Active Substance: AMIODARONE HYDROCHLORIDE
  9. ALLOPURINOL. [Concomitant]
     Active Substance: ALLOPURINOL
  10. TOCOPHEROL [Concomitant]
     Active Substance: TOCOPHEROL
  11. METOPROLOL TARTRATE. [Concomitant]
     Active Substance: METOPROLOL TARTRATE
  12. MELATONIN [Concomitant]
     Active Substance: MELATONIN
  13. LEVOXYL [Concomitant]
     Active Substance: LEVOTHYROXINE SODIUM
  14. FUROSEMIDE. [Concomitant]
     Active Substance: FUROSEMIDE

REACTIONS (3)
  - Chest tube insertion [Unknown]
  - White blood cell count increased [Recovered/Resolved]
  - Fall [Recovered/Resolved]

NARRATIVE: CASE EVENT DATE: 20190127
